FAERS Safety Report 9108369 (Version 1)
Quarter: 2013Q1

REPORT INFORMATION
  Report Type: Spontaneous
  Country: TR (occurrence: TR)
  Receive Date: 20130222
  Receipt Date: 20130222
  Transmission Date: 20140127
  Serious: Yes (Hospitalization, Other)
  Sender: FDA-Public Use
  Company Number: TR-ALLERGAN-1302725US

PATIENT
  Age: 3 Month
  Sex: Female

DRUGS (3)
  1. CYCLOPENTOLATE [Suspect]
     Indication: OPHTHALMOLOGICAL EXAMINATION
     Dosage: 2 GTT, UNK
  2. PHENYLEPHRINE [Suspect]
     Indication: OPHTHALMOLOGICAL EXAMINATION
     Dosage: 2 GTT, UNK
  3. KETAMINE [Concomitant]

REACTIONS (1)
  - Myoclonic epilepsy [Recovered/Resolved]
